FAERS Safety Report 8917131 (Version 1)
Quarter: 2012Q4

REPORT INFORMATION
  Report Type: 
  Country: JP (occurrence: JP)
  Receive Date: 20121120
  Receipt Date: 20121120
  Transmission Date: 20130627
  Serious: Yes (Hospitalization, Other)
  Sender: FDA-Public Use
  Company Number: JP-ROXANE LABORATORIES, INC.-2012-RO-02398RO

PATIENT
  Age: 57 Year
  Sex: Female

DRUGS (6)
  1. METHOTREXATE [Suspect]
     Indication: RHEUMATOID ARTHRITIS
     Dates: start: 2004
  2. METHOTREXATE [Suspect]
     Route: 048
     Dates: start: 200905
  3. PREDNISOLONE [Suspect]
     Indication: RHEUMATOID ARTHRITIS
     Dosage: 6 mg
     Route: 048
     Dates: start: 200905
  4. PREDNISOLONE [Suspect]
     Dosage: 40 mg
     Route: 048
  5. ENTECAVIR [Suspect]
     Indication: HEPATITIS B
     Dosage: 0.5 mg
  6. METHYLPREDNISOLONE [Suspect]
     Indication: HEPATITIS B
     Dosage: 500 mg

REACTIONS (2)
  - Hepatitis B [Recovered/Resolved]
  - Drug-induced liver injury [Recovered/Resolved]
